FAERS Safety Report 6711345-4 (Version None)
Quarter: 2010Q2

REPORT INFORMATION
  Report Type: 
  Country: None (occurrence: None)
  Receive Date: 20100505
  Receipt Date: 20100421
  Transmission Date: 20101027
  Serious: Yes (Hospitalization)
  Sender: FDA-Public Use
  Company Number: FR-PFIZER INC-2010052983

PATIENT
  Age: 38 Year
  Sex: Male

DRUGS (8)
  1. ATARAX [Suspect]
     Dosage: 100 MG, SINGLE INTAKE
     Route: 048
     Dates: start: 20100323, end: 20100323
  2. LEPTICUR [Suspect]
     Indication: DRUG TOXICITY
     Dosage: SINGLE INTAKE; 1 BOX
     Route: 048
     Dates: start: 20100323, end: 20100323
  3. LEPTICUR [Suspect]
     Dosage: 10 MG, UNK
     Route: 048
     Dates: start: 20100324
  4. SUBUTEX [Concomitant]
  5. PROZAC [Concomitant]
  6. TETRAZEPAM [Concomitant]
  7. NORDAZ [Concomitant]
  8. IBUPROFENE [Concomitant]

REACTIONS (5)
  - AGITATION [None]
  - DELIRIUM [None]
  - DRUG TOXICITY [None]
  - HALLUCINATION [None]
  - LYMPHOEDEMA [None]
